FAERS Safety Report 9663105 (Version 1)
Quarter: 2013Q4

REPORT INFORMATION
  Report Type: Report from Study
  Country: FR (occurrence: FR)
  Receive Date: 20131101
  Receipt Date: 20131101
  Transmission Date: 20140711
  Serious: Yes (Other)
  Sender: FDA-Public Use
  Company Number: PHHY2013FR123036

PATIENT
  Age: 73 Year
  Sex: Female

DRUGS (6)
  1. ACLASTA/ZOLEDRONATE [Suspect]
     Indication: OSTEOPOROSIS
     Dosage: UNK UKN, UNK
     Route: 042
     Dates: start: 201112
  2. ACLASTA/ZOLEDRONATE [Suspect]
     Dosage: UNK UKN, UNK
     Route: 042
     Dates: start: 201212
  3. NOVONORM [Concomitant]
     Dosage: UNK UKN, UNK
     Dates: start: 1988, end: 201307
  4. GLUCOPHAGE [Concomitant]
     Dosage: UNK UKN, UNK
     Dates: start: 1988
  5. MICARDIS [Concomitant]
     Dosage: UNK UKN, UNK
     Dates: start: 2008
  6. DAFALGAN [Concomitant]
     Dosage: UNK UKN, UNK
     Dates: start: 2012, end: 2012

REACTIONS (1)
  - Rib fracture [Unknown]
